FAERS Safety Report 7193026 (Version 4)
Quarter: 2012Q4

REPORT INFORMATION
  Report Type: 
  Country: US (occurrence: US)
  Receive Date: 20091130
  Receipt Date: 20121001
  Transmission Date: 20130627
  Serious: Yes (Death, Other)
  Sender: FDA-Public Use
  Company Number: US-BAYER-200940201NA

PATIENT
  Age: 68 Year
  Sex: Female
  Weight: 70.75 kg

DRUGS (28)
  1. TRASYLOL [Suspect]
     Indication: CORONARY ARTERY BYPASS
     Dosage: 1ml initial test dose
     Route: 042
     Dates: start: 20050119, end: 20050119
  2. TRASYLOL [Suspect]
     Indication: CORONARY ARTERY BYPASS
     Dosage: 50ml/hr infusion
     Route: 042
     Dates: start: 20050119, end: 20050119
  3. TRASYLOL [Suspect]
     Indication: CORONARY ARTERY BYPASS
     Dosage: 200mL pump prime
  4. TOPROL XL [Concomitant]
     Dosage: 100 mg, QD
     Route: 048
  5. LIPITOR [Concomitant]
     Dosage: 20 mg, QD
     Route: 048
  6. NORVASC [Concomitant]
     Dosage: 10 mg, QD
     Route: 048
  7. PLAVIX [Concomitant]
     Dosage: 75 mg, QD
     Route: 048
  8. CELEBREX [Concomitant]
     Dosage: 200 mg, BID
     Route: 048
  9. DIOVAN [HYDROCHLOROTHIAZIDE,VALSARTAN] [Concomitant]
     Dosage: 150/12.5mg daily
     Route: 048
  10. BUSPAR [Concomitant]
     Dosage: 15 mg, BID
     Route: 048
  11. CARDIZEM [Concomitant]
     Dosage: UNK
     Route: 042
     Dates: start: 20050119
  12. VERSED [Concomitant]
     Dosage: 5 mg, UNK
     Route: 042
     Dates: start: 20050119
  13. FENTANYL [Concomitant]
     Dosage: UNK
     Route: 042
     Dates: start: 20050119
  14. HEPARIN [Concomitant]
     Dosage: 30000 u, UNK
     Route: 042
     Dates: start: 20050119
  15. DOPAMINE [Concomitant]
     Dosage: titrated
     Route: 042
     Dates: start: 20050119
  16. NIPRIDE [Concomitant]
     Dosage: titrated
     Dates: start: 20050119
  17. NITROGLYCERIN [Concomitant]
     Dosage: titrated
     Dates: start: 20050119
  18. PREVACID [Concomitant]
  19. CATAPRES [Concomitant]
  20. ZOCOR [Concomitant]
  21. AMBIEN [Concomitant]
     Dosage: 5 mg, PRN
     Route: 048
     Dates: start: 20050115
  22. TRENTAL [Concomitant]
     Dosage: 400 mg, TID
     Route: 048
     Dates: start: 20050114
  23. SIMVASTATIN [Concomitant]
     Dosage: 40 mg, QD
     Route: 048
     Dates: start: 20050115
  24. XANAX [Concomitant]
     Dosage: 0.25 mg, TID
     Route: 048
     Dates: start: 20050116
  25. PAVULON [Concomitant]
     Dosage: UNK
     Dates: start: 20050119
  26. LASIX [Concomitant]
     Dosage: UNK
     Dates: start: 20050119
  27. PROTAMINE [Concomitant]
     Dosage: UNK
     Dates: start: 20050119
  28. VANCOMYCIN [Concomitant]
     Dosage: UNK
     Dates: start: 20050119

REACTIONS (17)
  - Death [Fatal]
  - Multi-organ failure [Unknown]
  - Renal failure [Unknown]
  - Renal impairment [Unknown]
  - Renal failure acute [Recovering/Resolving]
  - Renal injury [Unknown]
  - Emotional distress [Unknown]
  - Stress [Unknown]
  - Anxiety [Unknown]
  - Unevaluable event [Unknown]
  - Fear [Unknown]
  - Pain [Unknown]
  - Unevaluable event [Unknown]
  - Anhedonia [Unknown]
  - Anxiety [Unknown]
  - Injury [Unknown]
  - Psychological trauma [Unknown]
